FAERS Safety Report 4787351-6 (Version None)
Quarter: 2005Q4

REPORT INFORMATION
  Report Type: 
  Country: None (occurrence: None)
  Receive Date: 20051003
  Receipt Date: 20050926
  Transmission Date: 20060501
  Serious: Yes (Death)
  Sender: FDA-Public Use
  Company Number: 200513233GDS

PATIENT
  Age: 11 Year
  Sex: Male

DRUGS (1)
  1. ASPIRIN [Suspect]
     Indication: RHEUMATIC FEVER

REACTIONS (11)
  - ALANINE AMINOTRANSFERASE INCREASED [None]
  - AMMONIA INCREASED [None]
  - BRAIN OEDEMA [None]
  - COMA [None]
  - ELECTROENCEPHALOGRAM ABNORMAL [None]
  - HAEMODIALYSIS [None]
  - INTERNATIONAL NORMALISED RATIO INCREASED [None]
  - MENTAL STATUS CHANGES [None]
  - PAPILLOEDEMA [None]
  - REYE'S SYNDROME [None]
  - TRANSAMINASES INCREASED [None]
